FAERS Safety Report 4444354-9 (Version None)
Quarter: 2004Q3

REPORT INFORMATION
  Report Type: 
  Country: None (occurrence: None)
  Receive Date: 20040730
  Receipt Date: 20040504
  Transmission Date: 20050211
  Serious: No
  Sender: FDA-Public Use
  Company Number: 04P-163-0259564-00

PATIENT
  Sex: Female

DRUGS (1)
  1. ULTANE [Suspect]
     Dates: start: 20040429, end: 20040429

REACTIONS (3)
  - CONVULSION [None]
  - PERIORBITAL HAEMATOMA [None]
  - UNEVALUABLE EVENT [None]
